FAERS Safety Report 5431730-0 (Version None)
Quarter: 2007Q3

REPORT INFORMATION
  Report Type: 
  Country: None (occurrence: None)
  Receive Date: 20070830
  Receipt Date: 20070816
  Transmission Date: 20080115
  Serious: Yes (Death)
  Sender: FDA-Public Use
  Company Number: FR-GENENTECH-246498

PATIENT
  Sex: Male

DRUGS (6)
  1. BEVACIZUMAB [Suspect]
     Indication: COLORECTAL CANCER METASTATIC
     Dosage: 570 MG, Q3W
     Route: 042
     Dates: start: 20070720
  2. CAPECITABINE [Suspect]
     Indication: COLORECTAL CANCER METASTATIC
     Dosage: 3800 MG, Q3W
     Route: 048
     Dates: start: 20070720
  3. IRINOTECAN HCL [Suspect]
     Indication: COLORECTAL CANCER METASTATIC
     Dosage: 380 MG, Q3W
     Route: 042
     Dates: start: 20070720
  4. KETOPROFEN [Concomitant]
     Indication: DRUG USE FOR UNKNOWN INDICATION
  5. LYTOS [Concomitant]
     Indication: DRUG USE FOR UNKNOWN INDICATION
  6. TRAMADOL HCL [Concomitant]
     Indication: DRUG USE FOR UNKNOWN INDICATION

REACTIONS (9)
  - ANOREXIA [None]
  - ASTHENIA [None]
  - BLOOD CREATININE INCREASED [None]
  - BLOOD UREA INCREASED [None]
  - DIARRHOEA [None]
  - MUSCULOSKELETAL CHEST PAIN [None]
  - NAUSEA [None]
  - VOMITING [None]
  - WEIGHT DECREASED [None]
